FAERS Safety Report 17694591 (Version 1)
Quarter: 2020Q2

REPORT INFORMATION
  Report Type: Report from Study
  Country: GB (occurrence: GB)
  Receive Date: 20200422
  Receipt Date: 20200422
  Transmission Date: 20200714
  Serious: Yes (Other)
  Sender: FDA-Public Use
  Company Number: GB-JNJFOC-20200424263

PATIENT
  Sex: Female

DRUGS (4)
  1. STELARA [Suspect]
     Active Substance: USTEKINUMAB
     Indication: PSORIASIS
     Route: 058
     Dates: start: 2015
  2. QUETIAPINE. [Concomitant]
     Active Substance: QUETIAPINE
  3. GABAPENTIN. [Concomitant]
     Active Substance: GABAPENTIN
  4. STELARA [Suspect]
     Active Substance: USTEKINUMAB

REACTIONS (2)
  - Hepatitis [Unknown]
  - Coronavirus infection [Unknown]

NARRATIVE: CASE EVENT DATE: 202003
